FAERS Safety Report 10633760 (Version 6)
Quarter: 2015Q1

REPORT INFORMATION
  Report Type: Spontaneous
  Country: JP (occurrence: JP)
  Receive Date: 20141205
  Receipt Date: 20150316
  Transmission Date: 20150720
  Serious: Yes (Other)
  Sender: FDA-Public Use
  Company Number: JP-MERCK-1412JPN002959

PATIENT
  Age: 51 Year
  Sex: Female

DRUGS (19)
  1. REFLEX [Suspect]
     Active Substance: MIRTAZAPINE
     Dosage: 30 MG, DAILY DOSE
     Route: 048
     Dates: start: 20091128, end: 20100201
  2. REFLEX [Suspect]
     Active Substance: MIRTAZAPINE
     Dosage: 15 MG, DAILY DOSE
     Route: 048
     Dates: start: 20100202, end: 20100218
  3. REFLEX [Suspect]
     Active Substance: MIRTAZAPINE
     Dosage: 45 MG/DAY
     Route: 048
     Dates: start: 20101218
  4. DEPAKENE [Concomitant]
     Active Substance: VALPROIC ACID
     Dosage: DAILY DOSE, 600 MG AFTER SUPPER
  5. CLOTIAZEPAM [Concomitant]
     Active Substance: CLOTIAZEPAM
     Dosage: 150 MG, QD
     Route: 048
     Dates: start: 20060124
  6. REFLEX [Suspect]
     Active Substance: MIRTAZAPINE
     Dosage: 22.5 MG, DAILY DOSE
     Route: 048
     Dates: start: 20100219, end: 20100308
  7. REFLEX [Suspect]
     Active Substance: MIRTAZAPINE
     Dosage: DAILY DOSE 30 MG TO 45 MG
     Route: 048
  8. REFLEX [Suspect]
     Active Substance: MIRTAZAPINE
     Dosage: 30 MG, DAILY DOSE
     Route: 048
     Dates: start: 20100309, end: 20100310
  9. SULPIRIDE [Suspect]
     Active Substance: SULPIRIDE
     Dosage: 150 MG, QD
     Route: 048
     Dates: start: 20060124
  10. DOGMATYL [Concomitant]
     Active Substance: SULPIRIDE
     Dosage: DAILY DOSE 50 MG
     Route: 048
  11. REFLEX [Suspect]
     Active Substance: MIRTAZAPINE
     Dosage: 22.5 MG, DAILY DOSE
     Route: 048
     Dates: start: 20100310, end: 20100407
  12. REFLEX [Suspect]
     Active Substance: MIRTAZAPINE
     Dosage: 45 MG, DAILY DOSE
     Route: 048
     Dates: start: 20100512, end: 20100604
  13. AMOXAPINE. [Suspect]
     Active Substance: AMOXAPINE
     Dosage: 20 MG, QD
     Route: 048
     Dates: start: 20080206
  14. REFLEX [Suspect]
     Active Substance: MIRTAZAPINE
     Indication: DEPRESSION
     Dosage: 15 MG, DAILY DOSE
     Route: 048
     Dates: start: 20091031, end: 20091127
  15. REFLEX [Suspect]
     Active Substance: MIRTAZAPINE
     Dosage: 30 MG, DAILY DOSE
     Route: 048
     Dates: start: 20100423, end: 20100510
  16. RIVOTRIL [Concomitant]
     Active Substance: CLONAZEPAM
     Dosage: DAILY DOSE 2MG
  17. REFLEX [Suspect]
     Active Substance: MIRTAZAPINE
     Dosage: 15 MG, DAILY DOSE
     Route: 048
     Dates: start: 20100409, end: 20100422
  18. REFLEX [Suspect]
     Active Substance: MIRTAZAPINE
     Dosage: DAILY DOSE 30 MG
     Route: 048
     Dates: start: 20101122
  19. ATARAX [Concomitant]
     Active Substance: HYDROXYZINE\HYDROXYZINE HYDROCHLORIDE
     Dosage: DAILY DOSE 50 MG AT BEDTIME

REACTIONS (6)
  - Obesity [Unknown]
  - Aggression [Recovered/Resolved]
  - Aggression [Recovered/Resolved]
  - Aggression [Recovered/Resolved]
  - Aggression [Recovered/Resolved]
  - Aggression [Recovered/Resolved]

NARRATIVE: CASE EVENT DATE: 20091209
